FAERS Safety Report 10171029 (Version 1)
Quarter: 2014Q2

REPORT INFORMATION
  Report Type: Spontaneous
  Country: US (occurrence: US)
  Receive Date: 20140514
  Receipt Date: 20140514
  Transmission Date: 20141212
  Serious: Yes (Other)
  Sender: FDA-Public Use
  Company Number: US-ASTELLAS-2014US005313

PATIENT
  Age: 89 Year
  Sex: Male

DRUGS (1)
  1. TARCEVA [Suspect]
     Indication: LUNG NEOPLASM MALIGNANT
     Route: 048
     Dates: start: 20140412, end: 20140420

REACTIONS (4)
  - Throat irritation [Recovering/Resolving]
  - Dyspepsia [Recovering/Resolving]
  - Stomatitis [Recovering/Resolving]
  - Rash [Recovering/Resolving]
